FAERS Safety Report 9982050 (Version 2)
Quarter: 2014Q1

REPORT INFORMATION
  Report Type: Report from Study
  Country: US (occurrence: US)
  Receive Date: 20140307
  Receipt Date: 20140307
  Transmission Date: 20141002
  Serious: No
  Sender: FDA-Public Use
  Company Number: US-ABBVIE-13P-163-1167491-00

PATIENT
  Age: 33 Year
  Sex: Female

DRUGS (7)
  1. HUMIRA [Suspect]
     Indication: CROHN^S DISEASE
     Dosage: LOADING DOSE
     Dates: start: 20131026, end: 20131026
  2. HUMIRA [Suspect]
     Dates: start: 20131117, end: 20131117
  3. HUMIRA [Suspect]
     Dates: start: 20131201
  4. LIALDA [Concomitant]
     Indication: PRODUCT USED FOR UNKNOWN INDICATION
  5. PREDNISONE [Concomitant]
     Indication: PRODUCT USED FOR UNKNOWN INDICATION
  6. BENTYL [Concomitant]
     Indication: PRODUCT USED FOR UNKNOWN INDICATION
     Dosage: 1-2 TABS TID PRN
  7. SYNTHROID [Concomitant]
     Dates: start: 20131117

REACTIONS (6)
  - Aphonia [Recovered/Resolved]
  - Sinus operation [Recovered/Resolved]
  - Oropharyngeal pain [Recovered/Resolved]
  - Infection [Recovered/Resolved]
  - Overdose [Unknown]
  - Diarrhoea [Not Recovered/Not Resolved]
